FAERS Safety Report 15328854 (Version 2)
Quarter: 2018Q3

REPORT INFORMATION
  Report Type: Report from Study
  Country: US (occurrence: US)
  Receive Date: 20180829
  Receipt Date: 20180914
  Transmission Date: 20181010
  Serious: No
  Sender: FDA-Public Use
  Company Number: PHEH2018US034275

PATIENT
  Age: 57 Year
  Sex: Male

DRUGS (2)
  1. COSENTYX [Suspect]
     Active Substance: SECUKINUMAB
     Indication: PSORIASIS
     Dosage: 300 MG, QW(2 DOSES OF 150 MG EACH)
     Route: 058
     Dates: start: 20180806
  2. COSENTYX [Suspect]
     Active Substance: SECUKINUMAB
     Dosage: 300 MG, QW(2 DOSES OF 150 MG EACH)
     Route: 058
     Dates: start: 20180813

REACTIONS (5)
  - Incorrect dose administered [Unknown]
  - Diarrhoea [Unknown]
  - Device malfunction [Unknown]
  - Device leakage [Unknown]
  - Oropharyngeal pain [Unknown]

NARRATIVE: CASE EVENT DATE: 20180813
